APPROVED DRUG PRODUCT: PHRENILIN WITH CAFFEINE AND CODEINE
Active Ingredient: ACETAMINOPHEN; BUTALBITAL; CAFFEINE; CODEINE PHOSPHATE
Strength: 325MG;50MG;40MG;30MG
Dosage Form/Route: CAPSULE;ORAL
Application: A074911 | Product #001
Applicant: VALEANT PHARMACEUTICALS INTERNATIONAL
Approved: Aug 22, 2001 | RLD: No | RS: No | Type: DISCN